FAERS Safety Report 7290033-2 (Version None)
Quarter: 2011Q1

REPORT INFORMATION
  Report Type: 
  Country: None (occurrence: None)
  Receive Date: 20110209
  Receipt Date: 20110209
  Transmission Date: 20110831
  Serious: Yes (Life-Threatening, Hospitalization)
  Sender: FDA-Public Use
  Company Number: None

PATIENT
  Age: 64 Year
  Sex: Female
  Weight: 52.6173 kg

DRUGS (14)
  1. MOTRIN [Concomitant]
  2. LOVENOX [Concomitant]
  3. ZOSYN [Concomitant]
  4. AMBIEN [Concomitant]
  5. HYDROCODONE BITARTRATE [Concomitant]
  6. LEVAQUIN [Suspect]
     Indication: PNEUMONIA
     Dosage: BAG 1 DAILY IV DRIP
     Route: 041
     Dates: start: 20100518, end: 20100523
  7. XANAX [Concomitant]
  8. TYENOL [Concomitant]
  9. TUMS [Concomitant]
  10. PANTOPRAZOLE [Concomitant]
  11. VANCOMYCIN [Concomitant]
  12. ROCEPHIN [Concomitant]
  13. PREDNISONE TAB [Concomitant]
  14. ZOFRAN [Concomitant]

REACTIONS (23)
  - HEART RATE INCREASED [None]
  - PAIN [None]
  - MUSCULOSKELETAL DISORDER [None]
  - CONTUSION [None]
  - ERYTHEMA [None]
  - XANTHOPSIA [None]
  - OEDEMA PERIPHERAL [None]
  - WEIGHT DECREASED [None]
  - INSOMNIA [None]
  - PHOTOPSIA [None]
  - CYANOPSIA [None]
  - PAIN IN EXTREMITY [None]
  - FOOD INTOLERANCE [None]
  - GASTRIC DISORDER [None]
  - IMPAIRED DRIVING ABILITY [None]
  - VISION BLURRED [None]
  - HEADACHE [None]
  - ASTHENIA [None]
  - RESPIRATORY FAILURE [None]
  - TRIGGER FINGER [None]
  - ABASIA [None]
  - ACTIVITIES OF DAILY LIVING IMPAIRED [None]
  - QUALITY OF LIFE DECREASED [None]
